FAERS Safety Report 21933975 (Version 1)
Quarter: 2023Q1

REPORT INFORMATION
  Report Type: Spontaneous
  Country: JP (occurrence: JP)
  Receive Date: 20230201
  Receipt Date: 20230201
  Transmission Date: 20230417
  Serious: Yes (Hospitalization)
  Sender: FDA-Public Use
  Company Number: JP-002147023-NVSJ2023JP002222

PATIENT

DRUGS (1)
  1. KESIMPTA [Suspect]
     Active Substance: OFATUMUMAB
     Indication: Myasthenia gravis
     Dosage: 20 MG
     Route: 058

REACTIONS (3)
  - Lymphocyte count decreased [Recovering/Resolving]
  - Coronavirus infection [Recovered/Resolved]
  - Off label use [Unknown]
